FAERS Safety Report 8281023 (Version 2)
Quarter: 2018Q3

REPORT INFORMATION
  Report Type: Report from Study
  Country: JP (occurrence: JP)
  Receive Date: 20111208
  Receipt Date: 20180803
  Transmission Date: 20181010
  Serious: Yes (Other)
  Sender: FDA-Public Use
  Company Number: JP-ROCHE-1009219

PATIENT
  Age: 79 Year
  Sex: Male
  Weight: 68 kg

DRUGS (7)
  1. RANIBIZUMAB. [Suspect]
     Active Substance: RANIBIZUMAB
     Route: 050
     Dates: start: 20110222, end: 20110222
  2. HYALEIN [Suspect]
     Active Substance: HYALURONATE SODIUM
     Indication: PRODUCT USED FOR UNKNOWN INDICATION
     Route: 047
     Dates: start: 20100901
  3. RANIBIZUMAB. [Suspect]
     Active Substance: RANIBIZUMAB
     Indication: AGE-RELATED MACULAR DEGENERATION
     Route: 050
     Dates: start: 20101124, end: 20101124
  4. NORVASC [Suspect]
     Active Substance: AMLODIPINE BESYLATE
     Indication: HYPERTENSION
     Route: 048
  5. TAPROS (JAPAN) [Concomitant]
     Indication: PRODUCT USED FOR UNKNOWN INDICATION
     Route: 047
  6. CEFMENOXIME HYDROCHLORIDE [Concomitant]
     Active Substance: CEFMENOXIME HYDROCHLORIDE
     Indication: PRODUCT USED FOR UNKNOWN INDICATION
     Route: 065
     Dates: start: 201011, end: 201011
  7. LEUPRORELIN ACETATE [Concomitant]
     Active Substance: LEUPROLIDE ACETATE

REACTIONS (1)
  - Conjunctival bleb [Recovered/Resolved]

NARRATIVE: CASE EVENT DATE: 20101208
